FAERS Safety Report 4758505-X (Version None)
Quarter: 2005Q3

REPORT INFORMATION
  Report Type: 
  Country: None (occurrence: None)
  Receive Date: 20050901
  Receipt Date: 20050822
  Transmission Date: 20060218
  Serious: Yes (Hospitalization)
  Sender: FDA-Public Use
  Company Number: PHFR2005GB02844

PATIENT
  Age: 48 Year
  Sex: Male

DRUGS (9)
  1. ACETYLSALICYLIC ACID SRT [Suspect]
     Dosage: 75 MG, QD
  2. VOLTAROL GEL PATCH (NCH) [Suspect]
     Dosage: UNK, BID
  3. DICLOFENAC [Suspect]
     Dosage: 75 MG, QD
     Route: 048
     Dates: end: 20050729
  4. ATENOLOL [Concomitant]
     Indication: BLOOD PRESSURE INCREASED
     Dosage: 50 MG, QD
     Route: 048
  5. TRAMADOL HCL [Concomitant]
     Dosage: 100 MG, BID
     Route: 048
  6. IMIDAPRIL [Concomitant]
     Indication: BLOOD PRESSURE INCREASED
     Dosage: 10 MG, QD
     Route: 048
  7. ESCITALOPRAM OXALATE [Concomitant]
     Dosage: 20 MG, QD
     Route: 048
  8. PIZOTIFEN [Concomitant]
     Indication: MIGRAINE
     Dosage: 1.5 MG ON
     Route: 048
  9. QUETIAPINE FUMARATE [Concomitant]
     Dosage: 500 MG, BID
     Route: 065

REACTIONS (10)
  - ABDOMINAL PAIN [None]
  - BLOOD UREA INCREASED [None]
  - DIZZINESS [None]
  - DUODENAL ULCER HAEMORRHAGE [None]
  - DYSPNOEA [None]
  - FAECES DISCOLOURED [None]
  - GASTRITIS [None]
  - HAEMATEMESIS [None]
  - HAEMOGLOBIN DECREASED [None]
  - HELICOBACTER INFECTION [None]
